FAERS Safety Report 6812692-8 (Version None)
Quarter: 2010Q3

REPORT INFORMATION
  Report Type: 
  Country: None (occurrence: None)
  Receive Date: 20100701
  Receipt Date: 20100628
  Transmission Date: 20110219
  Serious: Yes (Death, Hospitalization, Other)
  Sender: FDA-Public Use
  Company Number: DE-ROCHE-711736

PATIENT
  Age: 60 Year
  Sex: Male

DRUGS (6)
  1. VALGANCICLOVIR [Suspect]
     Indication: CYTOMEGALOVIRUS INFECTION
     Route: 065
  2. MYCOPHENOLATE MOFETIL [Suspect]
     Route: 065
  3. PREDNISOLONE [Suspect]
     Route: 065
  4. PENTOSTATIN [Suspect]
     Route: 065
  5. CYCLOSPORINE [Suspect]
     Route: 065
  6. TACROLIMUS [Suspect]
     Route: 065

REACTIONS (7)
  - DIABETES MELLITUS [None]
  - DIARRHOEA [None]
  - PANCYTOPENIA [None]
  - PULMONARY HAEMORRHAGE [None]
  - RENAL FAILURE CHRONIC [None]
  - THROMBOCYTOPENIA [None]
  - ZYGOMYCOSIS [None]
